FAERS Safety Report 20163529 (Version 1)
Quarter: 2021Q4

REPORT INFORMATION
  Report Type: Spontaneous
  Country: CN (occurrence: None)
  Receive Date: 20211209
  Receipt Date: 20211209
  Transmission Date: 20220303
  Serious: Yes (Other)
  Sender: FDA-Public Use
  Company Number: CN-ROCHE-2969304

PATIENT
  Age: 54 Year
  Sex: Female
  Weight: 51 kg

DRUGS (2)
  1. HERCEPTIN [Suspect]
     Active Substance: TRASTUZUMAB
     Indication: Breast cancer
     Route: 041
     Dates: start: 20211123, end: 20211123
  2. SODIUM CHLORIDE [Concomitant]
     Active Substance: SODIUM CHLORIDE
     Route: 041
     Dates: start: 20211123, end: 20211123

REACTIONS (6)
  - Tachypnoea [Recovering/Resolving]
  - Temperature intolerance [Unknown]
  - Chills [Unknown]
  - Pallor [Unknown]
  - Cyanosis [Unknown]
  - Pyrexia [Recovering/Resolving]

NARRATIVE: CASE EVENT DATE: 20211123
